FAERS Safety Report 7384288-3 (Version None)
Quarter: 2011Q1

REPORT INFORMATION
  Report Type: 
  Country: None (occurrence: None)
  Receive Date: 20110330
  Receipt Date: 20110324
  Transmission Date: 20110831
  Serious: Yes (Other)
  Sender: FDA-Public Use
  Company Number: GB-MERCK-1103GBR00130

PATIENT
  Age: 53 Year
  Sex: Female

DRUGS (1)
  1. PRINIVIL [Suspect]
     Indication: HYPERTENSION
     Route: 048
     Dates: start: 20110218

REACTIONS (12)
  - MYALGIA [None]
  - COUGH [None]
  - FEAR [None]
  - DYSPHAGIA [None]
  - DRY THROAT [None]
  - PANIC ATTACK [None]
  - MUSCULOSKELETAL PAIN [None]
  - NECK PAIN [None]
  - BACK PAIN [None]
  - JOINT SWELLING [None]
  - ANGER [None]
  - PAIN [None]
